FAERS Safety Report 20715741 (Version 1)
Quarter: 2022Q2

REPORT INFORMATION
  Report Type: Spontaneous
  Country: EC (occurrence: EC)
  Receive Date: 20220415
  Receipt Date: 20220415
  Transmission Date: 20220721
  Serious: Yes (Other)
  Sender: FDA-Public Use
  Company Number: EC-Teikoku Pharma USA-TPU2022-00309

PATIENT
  Age: 69 Year
  Sex: Female

DRUGS (7)
  1. LIDOCAINE [Suspect]
     Active Substance: LIDOCAINE
     Indication: Post herpetic neuralgia
     Route: 061
     Dates: start: 20210604
  2. LIDOCAINE [Suspect]
     Active Substance: LIDOCAINE
     Route: 061
     Dates: start: 20210604
  3. BUPIVACAINE HYDROCHLORIDE;METHYLPREDNISOLONE ACETATE [Concomitant]
  4. PREGABALIN [Concomitant]
     Active Substance: PREGABALIN
  5. TAPENTADOL [Concomitant]
     Active Substance: TAPENTADOL
  6. DEPO-MEDROL [Concomitant]
     Active Substance: METHYLPREDNISOLONE ACETATE
     Dates: start: 20210607
  7. BUPIVACAINE [Concomitant]
     Active Substance: BUPIVACAINE
     Dates: start: 20210607

REACTIONS (1)
  - Application site pain [Recovering/Resolving]

NARRATIVE: CASE EVENT DATE: 20210606
